FAERS Safety Report 8213652-5 (Version None)
Quarter: 2012Q1

REPORT INFORMATION
  Report Type: 
  Country: None (occurrence: None)
  Receive Date: 20120315
  Receipt Date: 20120314
  Transmission Date: 20120608
  Serious: Yes (Death)
  Sender: FDA-Public Use
  Company Number: PH-BAXTER-2012BH007693

PATIENT
  Age: 64 Year
  Sex: Male

DRUGS (1)
  1. DIANEAL [Suspect]
     Indication: PERITONEAL DIALYSIS
     Route: 033
     Dates: start: 20110811, end: 20120305

REACTIONS (5)
  - MYOCARDIAL INFARCTION [None]
  - OEDEMA [None]
  - DECREASED APPETITE [None]
  - CARDIO-RESPIRATORY ARREST [None]
  - DYSPNOEA [None]
